FAERS Safety Report 6026952-4 (Version None)
Quarter: 2009Q1

REPORT INFORMATION
  Report Type: 
  Country: None (occurrence: None)
  Receive Date: 20090105
  Receipt Date: 20081224
  Transmission Date: 20090719
  Serious: Yes (Disabling, Other)
  Sender: FDA-Public Use
  Company Number: PHHY2008GB32200

PATIENT
  Sex: Male

DRUGS (2)
  1. CLOZARIL [Suspect]
     Indication: SCHIZOPHRENIA
     Dosage: UNK
     Dates: start: 20080925
  2. CLOZARIL [Suspect]
     Dosage: 250 MG, UNK
     Dates: start: 20081008, end: 20081209

REACTIONS (4)
  - CARDIAC DISORDER [None]
  - DEPRESSED LEVEL OF CONSCIOUSNESS [None]
  - HYPOKINESIA [None]
  - SOMNOLENCE [None]
